FAERS Safety Report 18719490 (Version 1)
Quarter: 2021Q1

REPORT INFORMATION
  Report Type: Spontaneous
  Country: GB (occurrence: GB)
  Receive Date: 20210108
  Receipt Date: 20210108
  Transmission Date: 20210419
  Serious: Yes (Other)
  Sender: FDA-Public Use
  Company Number: GB-TEVA-2021-GB-1866177

PATIENT
  Age: 59 Year
  Sex: Female
  Weight: 74 kg

DRUGS (13)
  1. NAPROXEN. [Concomitant]
     Active Substance: NAPROXEN
     Dosage: WITH FOOD,UNIT DOSE:4DOSAGEFORM
     Dates: start: 20201102
  2. HYLO?FORTE [Concomitant]
     Active Substance: HYALURONATE SODIUM
     Dosage: ONE DROP EACH EYE:UNIT DOSE:2GTT
     Dates: start: 20200721
  3. FENBID [Concomitant]
     Active Substance: IBUPROFEN
     Dosage: APPLY, TO AFFECTED AREA:UNIT DOSE:3DOSAGEFORM
     Dates: start: 20200917, end: 20201001
  4. LANSOPRAZOLE. [Concomitant]
     Active Substance: LANSOPRAZOLE
     Dosage: 1DOSAGEFORM
     Dates: start: 20201102
  5. SODIUM ALGINATE [Concomitant]
     Active Substance: SODIUM ALGINATE
     Dosage: 10 ML DAILY; IN THE MORNING
     Dates: start: 20200721
  6. AMITRIPTYLINE HYDROCHLORIDE. [Concomitant]
     Active Substance: AMITRIPTYLINE HYDROCHLORIDE
     Dosage: 1 DOSAGE FORMS DAILY; EACH NIGHT
     Dates: start: 20200921, end: 20201019
  7. IBUPROFEN. [Concomitant]
     Active Substance: IBUPROFEN
     Dosage: 3DOSAGEFORM
     Dates: start: 20200917, end: 20200924
  8. LATANOPROST. [Concomitant]
     Active Substance: LATANOPROST
     Dosage: 1 GTT DAILY; AT NIGHT ? LEFT EYE
     Dates: start: 20200721
  9. DOXYCYCLINE. [Concomitant]
     Active Substance: DOXYCYCLINE
     Dosage: UNIT DOSE:2DOSAGEFORM
     Dates: start: 20200928, end: 20201005
  10. ANUSOL NOS [Concomitant]
     Active Substance: BALSAM PERU\BENZYL BENZOATE\BISMUTH HYDROXIDE\BISMUTH SUBGALLATE\HYDROCORTISONE ACETATE\ZINC OXIDE
     Dosage: INSERT:UNIT DOSE:2DOSAGEFORM
     Dates: start: 20201007, end: 20201013
  11. ACICLOVIR [Concomitant]
     Active Substance: ACYCLOVIR
     Dosage: FOR 5 DAYS:UNIT DOSE:5DOSAGEFORM
     Dates: start: 20201119, end: 20201124
  12. GABAPENTIN. [Suspect]
     Active Substance: GABAPENTIN
     Dosage: TAKE ONE DAILY FOR 2?3 DAYS AND THEN ONE TWICE A DAY FOR 2?3 DAYS AND...
     Dates: start: 20201207
  13. DULOXETINE. [Concomitant]
     Active Substance: DULOXETINE
     Dosage: 1DOSAGEFORM
     Dates: start: 20200928, end: 20201026

REACTIONS (2)
  - Chest discomfort [Unknown]
  - Rash [Recovered/Resolved]

NARRATIVE: CASE EVENT DATE: 202012
